FAERS Safety Report 8136588-7 (Version None)
Quarter: 2012Q1

REPORT INFORMATION
  Report Type: 
  Country: None (occurrence: None)
  Receive Date: 20120214
  Receipt Date: 20120201
  Transmission Date: 20120608
  Serious: Yes (Other)
  Sender: FDA-Public Use
  Company Number: PHFR2011GB01749

PATIENT
  Sex: Male

DRUGS (1)
  1. CLOZARIL [Suspect]
     Indication: SCHIZOPHRENIA
     Dosage: 350 MG
     Route: 048
     Dates: start: 20020202

REACTIONS (4)
  - CONSTIPATION [None]
  - DIARRHOEA [None]
  - IRRITABLE BOWEL SYNDROME [None]
  - HAEMOGLOBIN ABNORMAL [None]
